FAERS Safety Report 20447539 (Version 1)
Quarter: 2022Q1

REPORT INFORMATION
  Report Type: Report from Study
  Country: US (occurrence: US)
  Receive Date: 20220209
  Receipt Date: 20220209
  Transmission Date: 20220423
  Serious: No
  Sender: FDA-Public Use
  Company Number: US-ORG100014127-2021001577

PATIENT
  Sex: Female

DRUGS (3)
  1. LYSODREN [Suspect]
     Active Substance: MITOTANE
     Dosage: UNK
     Route: 048
     Dates: start: 20190227
  2. LYSODREN [Suspect]
     Active Substance: MITOTANE
     Dosage: 05 TABLETS PER DAY
     Route: 048
     Dates: start: 20201119
  3. LYSODREN [Suspect]
     Active Substance: MITOTANE
     Dosage: 06 TABLETS PER DAY
     Route: 048
     Dates: start: 2021

REACTIONS (3)
  - Superior vena cava syndrome [Not Recovered/Not Resolved]
  - Fatigue [Not Recovered/Not Resolved]
  - Nausea [Not Recovered/Not Resolved]

NARRATIVE: CASE EVENT DATE: 20190101
